FAERS Safety Report 5085130-6 (Version None)
Quarter: 2006Q3

REPORT INFORMATION
  Report Type: 
  Country: None (occurrence: None)
  Receive Date: 20060720
  Receipt Date: 20060509
  Transmission Date: 20061208
  Serious: Yes (Life-Threatening, Hospitalization, Other)
  Sender: FDA-Public Use
  Company Number: 2005056815

PATIENT
  Age: 58 Year
  Sex: Male
  Weight: 102.0593 kg

DRUGS (2)
  1. CELEBREX [Suspect]
     Indication: ARTHRITIS
     Dosage: 200 MG (200 MG,1 IN 1 D)
     Dates: start: 20000101
  2. CELEBREX [Suspect]
     Indication: PAIN
     Dosage: 200 MG (200 MG,1 IN 1 D)
     Dates: start: 20000101

REACTIONS (1)
  - MYOCARDIAL INFARCTION [None]
